FAERS Safety Report 22160198 (Version 1)
Quarter: 2023Q1

REPORT INFORMATION
  Report Type: Spontaneous
  Country: MX (occurrence: MX)
  Receive Date: 20230331
  Receipt Date: 20230331
  Transmission Date: 20230418
  Serious: Yes (Death, Life-Threatening, Hospitalization, Other)
  Sender: FDA-Public Use
  Company Number: MX-BAXTER-2023BAX016537

PATIENT
  Age: 45 Year
  Sex: Male

DRUGS (26)
  1. CYCLOPHOSPHAMIDE [Suspect]
     Active Substance: CYCLOPHOSPHAMIDE
     Indication: Diffuse large B-cell lymphoma
     Dosage: 6 CYCLES OF R-CHOP
     Route: 065
  2. DOXORUBICIN [Suspect]
     Active Substance: DOXORUBICIN
     Indication: Diffuse large B-cell lymphoma
     Dosage: 6 CYCLES OF R-CHOP
     Route: 065
  3. ETOPOSIDE [Suspect]
     Active Substance: ETOPOSIDE
     Indication: Diffuse large B-cell lymphoma
     Dosage: SECOND LINE OF CHEMOTHERAPY WITH R-ICE
     Route: 065
     Dates: start: 202102
  4. ETOPOSIDE [Suspect]
     Active Substance: ETOPOSIDE
     Indication: Central nervous system lymphoma
     Dosage: R-ESHAP
     Route: 065
     Dates: start: 202107, end: 20211217
  5. RITUXIMAB [Suspect]
     Active Substance: RITUXIMAB
     Indication: Diffuse large B-cell lymphoma
     Dosage: 6 CYCLES OF R-CHOP
     Route: 065
  6. RITUXIMAB [Suspect]
     Active Substance: RITUXIMAB
     Indication: Central nervous system lymphoma
     Dosage: R-ICE
     Route: 065
     Dates: start: 202102
  7. RITUXIMAB [Suspect]
     Active Substance: RITUXIMAB
     Dosage: R-ESHAP
     Route: 065
     Dates: start: 202107, end: 20211217
  8. VINCRISTINE [Suspect]
     Active Substance: VINCRISTINE
     Indication: Diffuse large B-cell lymphoma
     Dosage: 6 CYCLES OF R-CHOP
     Route: 065
  9. PREDNISONE [Suspect]
     Active Substance: PREDNISONE
     Indication: Diffuse large B-cell lymphoma
     Dosage: 6 CYCLES OF R-CHOP
     Route: 065
  10. IFOSFAMIDE [Suspect]
     Active Substance: IFOSFAMIDE
     Indication: Diffuse large B-cell lymphoma
     Dosage: SECOND LINE OF CHEMOTHERAPY WITH R-ICE
     Route: 065
     Dates: start: 202102
  11. CARBOPLATIN [Suspect]
     Active Substance: CARBOPLATIN
     Indication: Diffuse large B-cell lymphoma
     Dosage: SECOND LINE OF CHEMOTHERAPY WITH R-ICE
     Route: 065
     Dates: start: 202102
  12. CYTARABINE [Suspect]
     Active Substance: CYTARABINE
     Indication: Diffuse large B-cell lymphoma
     Dosage: R-ESHAP
     Route: 065
     Dates: start: 202107, end: 20211217
  13. CYTARABINE [Suspect]
     Active Substance: CYTARABINE
     Indication: Central nervous system lymphoma
  14. CISPLATIN [Suspect]
     Active Substance: CISPLATIN
     Indication: Central nervous system lymphoma
     Dosage: R-ESHAP
     Route: 065
     Dates: start: 202107, end: 20211217
  15. CISPLATIN [Suspect]
     Active Substance: CISPLATIN
     Indication: Diffuse large B-cell lymphoma
  16. METHYLPREDNISOLONE [Suspect]
     Active Substance: METHYLPREDNISOLONE
     Indication: Central nervous system lymphoma
     Dosage: R-ESHAP
     Route: 065
     Dates: start: 202107, end: 20211217
  17. METHYLPREDNISOLONE [Suspect]
     Active Substance: METHYLPREDNISOLONE
     Indication: Diffuse large B-cell lymphoma
  18. METHOTREXATE [Suspect]
     Active Substance: METHOTREXATE
     Indication: Diffuse large B-cell lymphoma
     Dosage: SALVAGE THERAPY
     Route: 037
     Dates: start: 202107, end: 20211217
  19. METHOTREXATE [Suspect]
     Active Substance: METHOTREXATE
     Indication: Central nervous system lymphoma
  20. BENDAMUSTINE [Suspect]
     Active Substance: BENDAMUSTINE
     Indication: Diffuse large B-cell lymphoma
     Dosage: FOURTH-LINE CHEMOTHERAPY
     Route: 065
     Dates: start: 20220303
  21. BENDAMUSTINE [Suspect]
     Active Substance: BENDAMUSTINE
     Dosage: FOURTH-LINE CHEMOTHERAPY
     Route: 065
     Dates: start: 20220401
  22. BRENTUXIMAB [Suspect]
     Active Substance: BRENTUXIMAB
     Indication: Diffuse large B-cell lymphoma
     Dosage: FOURTH-LINE CHEMOTHERAPY
     Route: 065
     Dates: start: 20220303
  23. BRENTUXIMAB [Suspect]
     Active Substance: BRENTUXIMAB
     Dosage: FOURTH-LINE CHEMOTHERAPY
     Route: 065
     Dates: start: 20220401
  24. PIPERACILLIN AND TAZOBACTAM [Concomitant]
     Active Substance: PIPERACILLIN SODIUM\TAZOBACTAM SODIUM
     Indication: Antibiotic therapy
     Dosage: THREE DAYS
     Route: 065
  25. LEVOFLOXACIN [Concomitant]
     Active Substance: LEVOFLOXACIN
     Indication: Antibiotic therapy
     Dosage: ON AN OUTPATIENT BASIS FOR FIVE DAYS
     Route: 065
  26. OXYGEN [Concomitant]
     Active Substance: OXYGEN
     Indication: Chylothorax
     Dosage: UNK
     Route: 045
     Dates: start: 202106

REACTIONS (7)
  - COVID-19 [Fatal]
  - Respiratory symptom [Fatal]
  - Viral load [Fatal]
  - Pyrexia [Fatal]
  - Pneumonia [Fatal]
  - Productive cough [Fatal]
  - Diarrhoea [Fatal]

NARRATIVE: CASE EVENT DATE: 20220301
